FAERS Safety Report 25320119 (Version 3)
Quarter: 2025Q2

REPORT INFORMATION
  Report Type: Spontaneous
  Country: US (occurrence: US)
  Receive Date: 20250515
  Receipt Date: 20250521
  Transmission Date: 20250717
  Serious: Yes (Other)
  Sender: PFIZER
  Company Number: US-PFIZER INC-PV202500056021

PATIENT
  Age: 72 Year
  Sex: Male

DRUGS (3)
  1. DOCETAXEL [Suspect]
     Active Substance: DOCETAXEL
     Indication: Hepatic angiosarcoma
  2. TACROLIMUS [Concomitant]
     Active Substance: TACROLIMUS
     Indication: Immunosuppressant drug therapy
     Dosage: FREQ:12 H;TACROLIMUS DOSE ADJUSTMENTS WERE MADE, LOW-DOSE
  3. EVEROLIMUS [Concomitant]
     Active Substance: EVEROLIMUS
     Indication: Immunosuppressant drug therapy
     Dosage: FREQ:12 H;WITH TARGET TROUGH LEVEL 3-7

REACTIONS (4)
  - Drug intolerance [Unknown]
  - Renal impairment [Unknown]
  - Urinary incontinence [Unknown]
  - Asthenia [Unknown]
